FAERS Safety Report 7381555-4 (Version None)
Quarter: 2011Q1

REPORT INFORMATION
  Report Type: 
  Country: None (occurrence: None)
  Receive Date: 20110329
  Receipt Date: 20110322
  Transmission Date: 20110831
  Serious: Yes (Other)
  Sender: FDA-Public Use
  Company Number: GB-TEVA-272822ISR

PATIENT
  Sex: Male
  Weight: 35.4 kg

DRUGS (5)
  1. QUETIAPINE [Interacting]
     Route: 048
  2. METRONIDAZOLE [Suspect]
  3. QUETIAPINE [Interacting]
     Indication: SCHIZOAFFECTIVE DISORDER
     Route: 048
     Dates: start: 20100101
  4. AMOXICILLIN [Interacting]
     Route: 048
  5. ANTIBIOTICS [Interacting]
     Indication: INFECTION

REACTIONS (8)
  - INTENTIONAL OVERDOSE [None]
  - SUICIDAL IDEATION [None]
  - ACUTE PSYCHOSIS [None]
  - HALLUCINATION, AUDITORY [None]
  - DELUSION [None]
  - HALLUCINATION [None]
  - DRUG INTERACTION [None]
  - DEPRESSED MOOD [None]
